FAERS Safety Report 23395512 (Version 2)
Quarter: 2024Q1

REPORT INFORMATION
  Report Type: Spontaneous
  Country: GB (occurrence: GB)
  Receive Date: 20240112
  Receipt Date: 20240206
  Transmission Date: 20240409
  Serious: Yes (Other)
  Sender: FDA-Public Use
  Company Number: GB-ELI_LILLY_AND_COMPANY-GB202312009039

PATIENT
  Sex: Female

DRUGS (3)
  1. PREDNISOLONE [Suspect]
     Active Substance: PREDNISOLONE
     Indication: Hypersensitivity
     Dosage: 10 MG, UNKNOWN;
     Route: 050
  2. PREDNISOLONE [Suspect]
     Active Substance: PREDNISOLONE
     Indication: Hypersensitivity
     Dosage: UNK UNK, UNKNOWN; ;
     Route: 065
  3. SELPERCATINIB [Suspect]
     Active Substance: SELPERCATINIB
     Indication: Non-small cell lung cancer
     Dosage: UNK UNK, UNKNOWN; ;
     Route: 048

REACTIONS (5)
  - Lymphocyte count decreased [Unknown]
  - Mucosal inflammation [Unknown]
  - Dysphagia [Unknown]
  - Rash [Unknown]
  - Hypersensitivity [Unknown]
